FAERS Safety Report 13108454 (Version 4)
Quarter: 2019Q2

REPORT INFORMATION
  Report Type: Spontaneous
  Country: JP (occurrence: JP)
  Receive Date: 20170112
  Receipt Date: 20190629
  Transmission Date: 20190711
  Serious: Yes (Death, Hospitalization, Other)
  Sender: FDA-Public Use
  Company Number: JP-BRISTOL-MYERS SQUIBB COMPANY-BMS-2016-110909

PATIENT
  Age: 70 Year
  Sex: Male

DRUGS (1)
  1. OPDIVO [Suspect]
     Active Substance: NIVOLUMAB
     Indication: NON-SMALL CELL LUNG CANCER RECURRENT
     Dosage: UNK
     Route: 041
     Dates: start: 201612, end: 201706

REACTIONS (9)
  - Decreased appetite [Unknown]
  - General physical health deterioration [Recovering/Resolving]
  - Secondary adrenocortical insufficiency [Unknown]
  - Pneumonia [Fatal]
  - Interstitial lung disease [Recovered/Resolved]
  - Anaemia [Recovering/Resolving]
  - Altered state of consciousness [Recovering/Resolving]
  - Malignant neoplasm progression [Unknown]
  - Pyrexia [Unknown]

NARRATIVE: CASE EVENT DATE: 201612
